FAERS Safety Report 17902672 (Version 1)
Quarter: 2020Q2

REPORT INFORMATION
  Report Type: Spontaneous
  Country: CN (occurrence: CN)
  Receive Date: 20200616
  Receipt Date: 20200616
  Transmission Date: 20200714
  Serious: Yes (Hospitalization)
  Sender: FDA-Public Use
  Company Number: CN-MYLANLABS-13X-035-1114648-00

PATIENT
  Age: 51 Year
  Sex: Female

DRUGS (2)
  1. RABEPRAZOLE [Interacting]
     Active Substance: RABEPRAZOLE
     Indication: HELICOBACTER GASTRITIS
     Dosage: 10 MILLIGRAM, BID
     Route: 048
     Dates: start: 20111204, end: 20111205
  2. CLARITHROMYCIN. [Suspect]
     Active Substance: CLARITHROMYCIN
     Indication: HELICOBACTER GASTRITIS
     Dosage: 500 MILLIGRAM, BID
     Route: 048
     Dates: start: 20111204, end: 20111205

REACTIONS (3)
  - Psychotic disorder [Recovered/Resolved]
  - Drug interaction [Recovered/Resolved]
  - Dissociative disorder [Recovered/Resolved]

NARRATIVE: CASE EVENT DATE: 201112
